FAERS Safety Report 5605257-7 (Version None)
Quarter: 2008Q1

REPORT INFORMATION
  Report Type: 
  Country: None (occurrence: None)
  Receive Date: 20080129
  Receipt Date: 20080116
  Transmission Date: 20080703
  Serious: Yes (Life-Threatening)
  Sender: FDA-Public Use
  Company Number: GB-PFIZER INC-2008005609

PATIENT
  Age: 74 Year
  Sex: Female

DRUGS (5)
  1. VERAPAMIL HYDROCHLORIDE [Suspect]
     Indication: SUPRAVENTRICULAR TACHYCARDIA
     Dosage: DAILY DOSE:60MG
     Route: 042
  2. VOLTAREN [Suspect]
     Dosage: DAILY DOSE:50MG
     Route: 042
  3. VERAPAMIL [Concomitant]
     Dosage: DAILY DOSE:240MG
     Route: 048
  4. PROPOFOL [Concomitant]
     Route: 042
  5. REMIFENTANIL [Concomitant]
     Route: 042

REACTIONS (2)
  - INCORRECT ROUTE OF DRUG ADMINISTRATION [None]
  - RESPIRATORY ARREST [None]
